APPROVED DRUG PRODUCT: POTASSIUM CHLORIDE
Active Ingredient: POTASSIUM CHLORIDE
Strength: 40MEQ/15ML
Dosage Form/Route: SOLUTION;ORAL
Application: A211665 | Product #001
Applicant: STRIDES PHARMA GLOBAL PTE LTD
Approved: Nov 17, 2022 | RLD: No | RS: No | Type: DISCN